FAERS Safety Report 6324337-4 (Version None)
Quarter: 2009Q3

REPORT INFORMATION
  Report Type: 
  Country: None (occurrence: None)
  Receive Date: 20090824
  Receipt Date: 20090427
  Transmission Date: 20100115
  Serious: No
  Sender: FDA-Public Use
  Company Number: US-ABBOTT-09P-163-0570222-00

PATIENT
  Sex: Male
  Weight: 99.88 kg

DRUGS (12)
  1. NIASPAN [Suspect]
     Indication: HIGH DENSITY LIPOPROTEIN DECREASED
     Route: 048
     Dates: start: 20090301
  2. CARVEDILOL [Concomitant]
     Indication: HYPERTENSION
  3. ASPIRIN [Concomitant]
     Indication: DRUG USE FOR UNKNOWN INDICATION
  4. LISINOPRIL [Concomitant]
     Indication: HYPERTENSION
  5. SIMVASTATIN [Concomitant]
     Indication: HIGH DENSITY LIPOPROTEIN DECREASED
  6. FLOMAX [Concomitant]
     Indication: PROSTATOMEGALY
  7. OLPRAZOLAM [Concomitant]
     Indication: ANXIETY
  8. AMBIEN [Concomitant]
     Indication: INSOMNIA
  9. ACIPHEX [Concomitant]
     Indication: GASTROOESOPHAGEAL REFLUX DISEASE
  10. BYETTA [Concomitant]
     Indication: DIABETES MELLITUS
     Route: 050
  11. GLYBURIDE [Concomitant]
     Indication: DIABETES MELLITUS
     Dosage: TWO TABS IN AM AND PM
  12. AVAPRO [Concomitant]
     Indication: HYPERTENSION

REACTIONS (1)
  - BLOOD GLUCOSE INCREASED [None]
